FAERS Safety Report 22219690 (Version 1)
Quarter: 2023Q2

REPORT INFORMATION
  Report Type: Spontaneous
  Country: DE (occurrence: DE)
  Receive Date: 20230417
  Receipt Date: 20230417
  Transmission Date: 20230722
  Serious: Yes (Death, Other)
  Sender: FDA-Public Use
  Company Number: DE-STADA-249822

PATIENT
  Age: 70 Year
  Sex: Male

DRUGS (24)
  1. GANCICLOVIR [Suspect]
     Active Substance: GANCICLOVIR
     Indication: Paraneoplastic pemphigus
     Dosage: UNK
     Route: 065
     Dates: start: 2021
  2. GANCICLOVIR [Suspect]
     Active Substance: GANCICLOVIR
     Indication: Emphysema
  3. GANCICLOVIR [Suspect]
     Active Substance: GANCICLOVIR
     Indication: Pneumomediastinum
  4. GANCICLOVIR [Suspect]
     Active Substance: GANCICLOVIR
     Indication: Subcutaneous emphysema
  5. CEFTRIAXONE [Suspect]
     Active Substance: CEFTRIAXONE
     Indication: Paraneoplastic pemphigus
     Dosage: 2 G, QD
     Route: 065
     Dates: start: 2021
  6. CEFTRIAXONE [Suspect]
     Active Substance: CEFTRIAXONE
     Indication: Antibiotic therapy
  7. PIPERACILLIN SODIUM\TAZOBACTAM SODIUM [Suspect]
     Active Substance: PIPERACILLIN SODIUM\TAZOBACTAM SODIUM
     Indication: Paraneoplastic pemphigus
     Dosage: 4.5 G, QID (0.25/DAY)
     Route: 065
     Dates: start: 2021
  8. PIPERACILLIN SODIUM\TAZOBACTAM SODIUM [Suspect]
     Active Substance: PIPERACILLIN SODIUM\TAZOBACTAM SODIUM
     Indication: Antibiotic therapy
     Dosage: 18 G, QD
     Route: 065
     Dates: start: 2021
  9. VORICONAZOLE [Suspect]
     Active Substance: VORICONAZOLE
     Indication: Paraneoplastic pemphigus
     Dosage: UNK
     Route: 065
     Dates: start: 2021
  10. VORICONAZOLE [Suspect]
     Active Substance: VORICONAZOLE
     Indication: Pneumomediastinum
  11. VORICONAZOLE [Suspect]
     Active Substance: VORICONAZOLE
     Indication: Emphysema
  12. VORICONAZOLE [Suspect]
     Active Substance: VORICONAZOLE
     Indication: Subcutaneous emphysema
  13. LINEZOLID [Suspect]
     Active Substance: LINEZOLID
     Indication: Paraneoplastic pemphigus
     Dosage: UNK
     Route: 065
     Dates: start: 2021
  14. LINEZOLID [Suspect]
     Active Substance: LINEZOLID
     Indication: Emphysema
  15. LINEZOLID [Suspect]
     Active Substance: LINEZOLID
     Indication: Pneumomediastinum
  16. LINEZOLID [Suspect]
     Active Substance: LINEZOLID
     Indication: Subcutaneous emphysema
  17. MEROPENEM [Suspect]
     Active Substance: MEROPENEM
     Indication: Paraneoplastic pemphigus
     Dosage: UNK
     Route: 065
     Dates: start: 2021
  18. MEROPENEM [Suspect]
     Active Substance: MEROPENEM
     Indication: Subcutaneous emphysema
  19. MEROPENEM [Suspect]
     Active Substance: MEROPENEM
     Indication: Pneumomediastinum
  20. BENDAMUSTINE [Concomitant]
     Active Substance: BENDAMUSTINE
     Indication: Follicular lymphoma stage IV
     Dosage: 125 MG, QD (ON DAY 1 AND 2)
     Route: 065
     Dates: start: 202109
  21. OBINUTUZUMAB [Concomitant]
     Active Substance: OBINUTUZUMAB
     Indication: Follicular lymphoma stage IV
     Dosage: 100 MG, QD (STARTING DOSE (ABSOLUTE))
     Route: 065
     Dates: start: 202109
  22. OBINUTUZUMAB [Concomitant]
     Active Substance: OBINUTUZUMAB
     Dosage: 1000 MG, QD (SECOND ADMINISTRATION)
     Route: 065
  23. PREDNISOLONE [Concomitant]
     Active Substance: PREDNISOLONE
     Indication: Paraneoplastic pemphigus
     Dosage: 500 MG, QD (HIGH DOSE)
     Route: 042
     Dates: start: 2021
  24. PREDNISOLONE [Concomitant]
     Active Substance: PREDNISOLONE
     Indication: Drug therapy

REACTIONS (4)
  - Respiratory failure [Fatal]
  - Drug ineffective [Unknown]
  - Condition aggravated [Not Recovered/Not Resolved]
  - Drug ineffective for unapproved indication [Unknown]
